FAERS Safety Report 10176582 (Version 1)
Quarter: 2014Q2

REPORT INFORMATION
  Report Type: Spontaneous
  Country: CN (occurrence: CN)
  Receive Date: 20140516
  Receipt Date: 20140516
  Transmission Date: 20141212
  Serious: Yes (Other)
  Sender: FDA-Public Use
  Company Number: PHHY2014CN059465

PATIENT
  Age: 11 Year
  Sex: Male

DRUGS (1)
  1. TEGRETOL [Suspect]
     Indication: FACIAL SPASM
     Dosage: 0.2 G, BID
     Route: 048
     Dates: start: 20131028, end: 20131029

REACTIONS (6)
  - Nausea [Recovering/Resolving]
  - Retching [Recovered/Resolved]
  - Mental disorder [Recovering/Resolving]
  - Dysphoria [Recovered/Resolved]
  - Sleep talking [Recovered/Resolved]
  - Hearing impaired [Recovered/Resolved]
